FAERS Safety Report 24755907 (Version 2)
Quarter: 2024Q4

REPORT INFORMATION
  Report Type: Spontaneous
  Country: GR (occurrence: GR)
  Receive Date: 20241219
  Receipt Date: 20241226
  Transmission Date: 20250114
  Serious: Yes (Death, Hospitalization, Other)
  Sender: ELI LILLY AND COMPANY
  Company Number: GR-009507513-2411GRC006529

PATIENT
  Age: 81 Year
  Sex: Male

DRUGS (3)
  1. ALIMTA [Suspect]
     Active Substance: PEMETREXED DISODIUM
     Indication: Lung cancer metastatic
     Dosage: UNK UNK, UNKNOWN
     Route: 065
     Dates: start: 2024, end: 2024
  2. KEYTRUDA [Suspect]
     Active Substance: PEMBROLIZUMAB
     Indication: Lung cancer metastatic
     Dosage: UNK UNK, EVERY 21D
     Route: 065
     Dates: start: 20240701, end: 20240722
  3. CARBOPLATIN [Suspect]
     Active Substance: CARBOPLATIN
     Indication: Lung cancer metastatic
     Dosage: UNK UNK, UNKNOWN
     Route: 065
     Dates: start: 2024, end: 2024

REACTIONS (3)
  - Muscular weakness [Fatal]
  - Immune-mediated myocarditis [Unknown]
  - Immune-mediated myositis [Unknown]

NARRATIVE: CASE EVENT DATE: 20240101
